FAERS Safety Report 5254317-1 (Version None)
Quarter: 2007Q1

REPORT INFORMATION
  Report Type: 
  Country: None (occurrence: None)
  Receive Date: 20070302
  Receipt Date: 20070227
  Transmission Date: 20070707
  Serious: Yes (Other)
  Sender: FDA-Public Use
  Company Number: HQWYE062127FEB07

PATIENT
  Age: 58 Year
  Sex: Female

DRUGS (3)
  1. INDERAL [Suspect]
     Indication: ANXIETY
     Route: 048
     Dates: start: 20020101
  2. SACCHAROMYCES BOULARDII [Concomitant]
     Dosage: DOSE UNKNOWN
     Route: 065
     Dates: start: 20070219, end: 20070220
  3. BUSCOPAN [Concomitant]
     Indication: GASTROENTERITIS
     Dosage: DOSE UNKNOWN
     Route: 042
     Dates: start: 20070218, end: 20070219

REACTIONS (2)
  - GASTROENTERITIS ROTAVIRUS [None]
  - HYPERSENSITIVITY [None]
